FAERS Safety Report 8743620 (Version 2)
Quarter: 2012Q4

REPORT INFORMATION
  Report Type: 
  Country: US (occurrence: US)
  Receive Date: 20120824
  Receipt Date: 20121011
  Transmission Date: 20130627
  Serious: Yes (Hospitalization, Other)
  Sender: FDA-Public Use
  Company Number: US-ELI_LILLY_AND_COMPANY-US201208005127

PATIENT
  Age: 58 None
  Sex: Male

DRUGS (3)
  1. HUMALOG LISPRO [Suspect]
     Indication: TYPE 2 DIABETES MELLITUS
     Dosage: 25 u, tid
     Dates: start: 201202
  2. LANTUS [Concomitant]
  3. GLIPIZDE [Concomitant]

REACTIONS (1)
  - Hepatic encephalopathy [Recovered/Resolved]
